FAERS Safety Report 21395855 (Version 1)
Quarter: 2022Q3

REPORT INFORMATION
  Report Type: Spontaneous
  Country: US (occurrence: None)
  Receive Date: 20220929
  Receipt Date: 20220929
  Transmission Date: 20221027
  Serious: Yes (Death)
  Sender: FDA-Public Use
  Company Number: None

PATIENT
  Age: 63 Year
  Sex: Female
  Weight: 87.4 kg

DRUGS (5)
  1. OXALIPLATIN [Suspect]
     Active Substance: OXALIPLATIN
     Indication: Small intestine carcinoma metastatic
     Dosage: FREQUENCY : EVERY OTHER WEEK;?
     Route: 041
     Dates: start: 20220830, end: 20220927
  2. LEUCOVORIN [Concomitant]
     Active Substance: LEUCOVORIN
     Dates: start: 20220830, end: 20220927
  3. FLUOROURACIL [Concomitant]
     Active Substance: FLUOROURACIL
     Dates: start: 20220830, end: 20220927
  4. DEXAMETHASONE [Concomitant]
     Active Substance: DEXAMETHASONE
     Dates: start: 20220830, end: 20220927
  5. PALONOSETRON [Concomitant]
     Active Substance: PALONOSETRON
     Dates: start: 20220830, end: 20220927

REACTIONS (5)
  - Dysgeusia [None]
  - Retching [None]
  - Respiratory arrest [None]
  - Unresponsive to stimuli [None]
  - Resuscitation [None]

NARRATIVE: CASE EVENT DATE: 20220927
